FAERS Safety Report 5336351-6 (Version None)
Quarter: 2007Q2

REPORT INFORMATION
  Report Type: 
  Country: None (occurrence: None)
  Receive Date: 20070523
  Receipt Date: 20070403
  Transmission Date: 20071010
  Serious: Yes (Hospitalization)
  Sender: FDA-Public Use
  Company Number: 2007US001115

PATIENT
  Age: 2 Year
  Sex: Female

DRUGS (1)
  1. FK506 - OINTMENT(TACROLIMUS) OINTMENT [Suspect]
     Indication: DERMATITIS ATOPIC

REACTIONS (1)
  - PNEUMONIA [None]
